FAERS Safety Report 24341566 (Version 1)
Quarter: 2024Q3

REPORT INFORMATION
  Report Type: Spontaneous
  Country: US (occurrence: US)
  Receive Date: 20240920
  Receipt Date: 20240920
  Transmission Date: 20241017
  Serious: No
  Sender: ABBVIE
  Company Number: US-ABBVIE-5923836

PATIENT
  Sex: Female

DRUGS (7)
  1. SYNTHROID [Suspect]
     Active Substance: LEVOTHYROXINE SODIUM
     Indication: Blood iron abnormal
     Route: 048
  2. OXBRYTA [Suspect]
     Active Substance: VOXELOTOR
     Indication: Product used for unknown indication
     Dosage: TAKES 3 TABLETS A DAY AT ONE TIME BY MOUTH ?DRUG STARTED END OF FEB2024 OR BEGINNING OF MAR2024
     Route: 048
     Dates: start: 2024
  3. METOPROLOL [Concomitant]
     Active Substance: METOPROLOL
     Indication: Cardiac disorder
  4. Spiractin [Concomitant]
     Indication: Cardiac disorder
  5. ZOLOFT [Concomitant]
     Active Substance: SERTRALINE HYDROCHLORIDE
     Indication: Blood iron abnormal
  6. JADENU [Concomitant]
     Active Substance: DEFERASIROX
     Indication: Blood iron abnormal
  7. HYDROXYUREA [Concomitant]
     Active Substance: HYDROXYUREA
     Indication: Product used for unknown indication
     Dosage: 1 TABLET

REACTIONS (2)
  - Haemoglobin decreased [Unknown]
  - Abdominal pain upper [Recovered/Resolved]

NARRATIVE: CASE EVENT DATE: 20240101
